FAERS Safety Report 19056626 (Version 2)
Quarter: 2021Q3

REPORT INFORMATION
  Report Type: Spontaneous
  Country: IN (occurrence: IN)
  Receive Date: 20210325
  Receipt Date: 20210730
  Transmission Date: 20211014
  Serious: Yes (Death, Hospitalization, Other)
  Sender: FDA-Public Use
  Company Number: IN-PFIZER INC-2020087181

PATIENT
  Age: 69 Year
  Sex: Female

DRUGS (7)
  1. PALBACE [Suspect]
     Active Substance: PALBOCICLIB
     Dosage: 125 MG, 1X/DAY
     Route: 048
     Dates: start: 20200118, end: 20210609
  2. PALBACE [Suspect]
     Active Substance: PALBOCICLIB
     Dosage: 125 MG OD D1?D21 THEN 7 DAYS GAP
     Dates: start: 20200305
  3. PALBACE [Suspect]
     Active Substance: PALBOCICLIB
     Indication: BREAST CANCER METASTATIC
     Dosage: 125 MG, 1X/DAY (D1?D21)
     Route: 048
     Dates: start: 20200108
  4. CCM [Concomitant]
     Dosage: UNK
  5. FULVESTRANT. [Concomitant]
     Active Substance: FULVESTRANT
     Dosage: 500 MG
     Route: 042
     Dates: start: 20191230
  6. FOLIC ACID. [Concomitant]
     Active Substance: FOLIC ACID
     Dosage: 5 MG
  7. ALKACIP [Concomitant]
     Dosage: UNK

REACTIONS (12)
  - Pollakiuria [Unknown]
  - Fatigue [Unknown]
  - Musculoskeletal chest pain [Unknown]
  - Blood pressure increased [Unknown]
  - Alopecia [Unknown]
  - Nausea [Unknown]
  - Escherichia test positive [Unknown]
  - Diarrhoea [Recovered/Resolved]
  - Mouth ulceration [Recovered/Resolved]
  - Restlessness [Unknown]
  - Neoplasm progression [Fatal]
  - Urinary tract infection [Unknown]
